FAERS Safety Report 10557309 (Version 2)
Quarter: 2014Q4

REPORT INFORMATION
  Report Type: Spontaneous
  Country: US (occurrence: US)
  Receive Date: 20141031
  Receipt Date: 20141031
  Transmission Date: 20150529
  Serious: Yes (Hospitalization)
  Sender: FDA-Public Use
  Company Number: US-FRI-1000051318

PATIENT
  Age: 52 Year
  Sex: Male

DRUGS (7)
  1. VIIBRYD [Suspect]
     Active Substance: VILAZODONE HYDROCHLORIDE
     Indication: ANXIETY
     Dosage: 40 MG
     Route: 048
     Dates: start: 20131111
  2. VITAMIN (NOS) [Concomitant]
  3. VIIBRYD [Suspect]
     Active Substance: VILAZODONE HYDROCHLORIDE
     Indication: PHOBIA
     Dosage: 10 MG
     Route: 048
     Dates: start: 20130923, end: 20130929
  4. ASPIRIN. [Concomitant]
     Active Substance: ASPIRIN
     Indication: ATRIAL FIBRILLATION
  5. OMEPRAZOLE. [Concomitant]
     Active Substance: OMEPRAZOLE
     Indication: GASTROOESOPHAGEAL REFLUX DISEASE
     Dosage: 40MG
  6. VIIBRYD [Suspect]
     Active Substance: VILAZODONE HYDROCHLORIDE
     Indication: DEPRESSION
     Dosage: 20 MG
     Route: 048
     Dates: start: 20130930, end: 20131110
  7. METOPROLOL [Concomitant]
     Active Substance: METOPROLOL
     Indication: ATRIAL FIBRILLATION
     Dosage: 25MG

REACTIONS (20)
  - Tremor [Not Recovered/Not Resolved]
  - Restlessness [Not Recovered/Not Resolved]
  - Abnormal dreams [Unknown]
  - Off label use [Not Recovered/Not Resolved]
  - Feeling jittery [Not Recovered/Not Resolved]
  - Syncope [Recovered/Resolved]
  - Cold-stimulus headache [Unknown]
  - Weight increased [Not Recovered/Not Resolved]
  - Palpitations [Unknown]
  - Diarrhoea [Unknown]
  - Fatigue [Not Recovered/Not Resolved]
  - Abdominal pain [Unknown]
  - Dizziness [Unknown]
  - Nausea [Unknown]
  - Flatulence [Unknown]
  - Insomnia [Not Recovered/Not Resolved]
  - Atrial fibrillation [Recovered/Resolved]
  - Paranoia [Unknown]
  - Feeling abnormal [Unknown]
  - Flushing [Unknown]

NARRATIVE: CASE EVENT DATE: 2013
